FAERS Safety Report 8544693-6 (Version None)
Quarter: 2012Q3

REPORT INFORMATION
  Report Type: 
  Country: None (occurrence: None)
  Receive Date: 20120727
  Receipt Date: 20120718
  Transmission Date: 20120928
  Serious: Yes (Hospitalization)
  Sender: FDA-Public Use
  Company Number: US-BRISTOL-MYERS SQUIBB COMPANY-16778979

PATIENT
  Age: 49 Year
  Sex: Male
  Weight: 77 kg

DRUGS (1)
  1. IPILIMUMAB [Suspect]
     Indication: MALIGNANT MELANOMA
     Dosage: LAST DOSE 25JUN12 COURSE 3
     Route: 042
     Dates: start: 20120509

REACTIONS (6)
  - NAUSEA [None]
  - DIARRHOEA [None]
  - VISION BLURRED [None]
  - HYPOPHYSITIS [None]
  - PERIPHERAL SENSORY NEUROPATHY [None]
  - DRY MOUTH [None]
